FAERS Safety Report 20769752 (Version 1)
Quarter: 2022Q2

REPORT INFORMATION
  Report Type: Spontaneous
  Country: US (occurrence: US)
  Receive Date: 20220429
  Receipt Date: 20220429
  Transmission Date: 20220721
  Serious: No
  Sender: FDA-Public Use
  Company Number: US-drreddys-SPO/USA/22/0149311

PATIENT
  Age: 16 Year

DRUGS (1)
  1. ZENATANE [Suspect]
     Active Substance: ISOTRETINOIN
     Indication: Product used for unknown indication
     Dosage: RMA ISSUE DATE:16 MARCH 2022 04:57:05 PM,04 MARCH 2022 01:14:44 PM,02 FEBRUARY 2022 01:43:40 PM,06 J

REACTIONS (1)
  - Treatment noncompliance [Unknown]
